FAERS Safety Report 17805396 (Version 2)
Quarter: 2020Q2

REPORT INFORMATION
  Report Type: Report from Study
  Country: ES (occurrence: ES)
  Receive Date: 20200520
  Receipt Date: 20200522
  Transmission Date: 20200714
  Serious: Yes (Disabling)
  Sender: FDA-Public Use
  Company Number: ES-BRISTOL-MYERS SQUIBB COMPANY-BMS-2020-039560

PATIENT
  Age: 34 Year
  Sex: Female

DRUGS (7)
  1. FAMOTIDINA [Concomitant]
     Indication: GASTROOESOPHAGEAL REFLUX DISEASE
     Route: 065
  2. DOMPERID [DOMPERIDONE MALEATE] [Concomitant]
     Indication: VOMITING
     Route: 065
  3. NIVOLUMAB [Suspect]
     Active Substance: NIVOLUMAB
     Indication: ALVEOLAR SOFT PART SARCOMA
     Dosage: 3 MILLIGRAM/KILOGRAM, Q2WK
     Route: 042
     Dates: start: 20190430
  4. SUNITINIB MALATE. [Suspect]
     Active Substance: SUNITINIB MALATE
     Indication: PRODUCT USED FOR UNKNOWN INDICATION
     Dosage: 25 MILLIGRAM
     Route: 048
     Dates: end: 20200108
  5. LOSARTAN AND HYDROCHLOROTHIAZIDE [Concomitant]
     Active Substance: HYDROCHLOROTHIAZIDE\LOSARTAN POTASSIUM
     Indication: HYPERTENSION
     Route: 065
  6. MEGESTROL [Concomitant]
     Active Substance: MEGESTROL
     Indication: APPETITE DISORDER
     Route: 065
  7. SUNITINIB MALATE. [Suspect]
     Active Substance: SUNITINIB MALATE
     Indication: ALVEOLAR SOFT PART SARCOMA
     Dosage: 37.5 MILLIGRAM
     Route: 048
     Dates: start: 20190417, end: 20200108

REACTIONS (1)
  - Metrorrhagia [Unknown]

NARRATIVE: CASE EVENT DATE: 20191218
